FAERS Safety Report 20509051 (Version 1)
Quarter: 2022Q1

REPORT INFORMATION
  Report Type: Spontaneous
  Country: US (occurrence: US)
  Receive Date: 20220223
  Receipt Date: 20220223
  Transmission Date: 20220424
  Serious: Yes (Other)
  Sender: FDA-Public Use
  Company Number: US-PFIZER INC-202200308989

PATIENT
  Age: 63 Year
  Weight: 33.57 kg

DRUGS (1)
  1. PAXLOVID [Suspect]
     Active Substance: NIRMATRELVIR\RITONAVIR
     Indication: COVID-19
     Dosage: UNK

REACTIONS (4)
  - Oropharyngeal blistering [Unknown]
  - Oral mucosal blistering [Unknown]
  - Dyspepsia [Unknown]
  - Rash vesicular [Unknown]

NARRATIVE: CASE EVENT DATE: 20220219
